FAERS Safety Report 5236691-5 (Version None)
Quarter: 2007Q1

REPORT INFORMATION
  Report Type: 
  Country: None (occurrence: None)
  Receive Date: 20070209
  Receipt Date: 20070129
  Transmission Date: 20070707
  Serious: Yes (Death, Hospitalization, Other)
  Sender: FDA-Public Use
  Company Number: 2007-00241

PATIENT
  Sex: Female

DRUGS (1)
  1. VELCADE [Suspect]
     Indication: MULTIPLE MYELOMA
     Dosage: 1.30 MG/M2, INTRAVENOUS
     Route: 042
     Dates: start: 20060810, end: 20061215

REACTIONS (3)
  - MULTI-ORGAN FAILURE [None]
  - SEPSIS [None]
  - THROMBOCYTOPENIA [None]
